FAERS Safety Report 9117163 (Version 9)
Quarter: 2017Q1

REPORT INFORMATION
  Report Type: Report from Study
  Country: CA (occurrence: CA)
  Receive Date: 20130225
  Receipt Date: 20170217
  Transmission Date: 20170429
  Serious: Yes (Life-Threatening, Hospitalization, Other)
  Sender: FDA-Public Use
  Company Number: CA-JNJFOC-20130213011

PATIENT
  Age: 67 Year
  Sex: Female
  Weight: 99.79 kg

DRUGS (1)
  1. STELARA [Suspect]
     Active Substance: USTEKINUMAB
     Indication: PSORIASIS
     Route: 058
     Dates: start: 201205, end: 201301

REACTIONS (5)
  - Muscular weakness [Not Recovered/Not Resolved]
  - Renal failure [Recovered/Resolved]
  - Malignant neoplasm of spinal cord [Not Recovered/Not Resolved]
  - Neoplasm malignant [Unknown]
  - Small cell lung cancer metastatic [Not Recovered/Not Resolved]

NARRATIVE: CASE EVENT DATE: 201301
